FAERS Safety Report 24127089 (Version 1)
Quarter: 2024Q3

REPORT INFORMATION
  Report Type: Report from Study
  Country: DE (occurrence: DE)
  Receive Date: 20240723
  Receipt Date: 20240723
  Transmission Date: 20241016
  Serious: Yes (Other)
  Sender: NORDIC PHARMA
  Company Number: DE-JNJFOC-20211203958

PATIENT
  Age: 4 Decade
  Sex: Male

DRUGS (4)
  1. METHOTREXATE [Suspect]
     Active Substance: METHOTREXATE
     Indication: Psoriatic arthropathy
     Dosage: THERAPY START DATE: 08-APR-2022
     Route: 065
     Dates: start: 20220408
  2. SIMPONI [Concomitant]
     Active Substance: GOLIMUMAB
     Indication: Psoriatic arthropathy
     Dosage: THERAPY START DATE: 15-FEB-2022
     Route: 058
     Dates: end: 20230114
  3. SIMPONI [Concomitant]
     Active Substance: GOLIMUMAB
     Indication: Psoriatic arthropathy
     Dosage: THERAPY START DATE: 15-JAN-2023
     Route: 058
  4. SIMPONI [Concomitant]
     Active Substance: GOLIMUMAB
     Indication: Psoriatic arthropathy
     Route: 058

REACTIONS (2)
  - Oral herpes [Unknown]
  - Foetal exposure via father [Recovered/Resolved]

NARRATIVE: CASE EVENT DATE: 20230103
